FAERS Safety Report 13199933 (Version 2)
Quarter: 2017Q1

REPORT INFORMATION
  Report Type: Spontaneous
  Country: US (occurrence: US)
  Receive Date: 20170208
  Receipt Date: 20170307
  Transmission Date: 20170428
  Serious: No
  Sender: FDA-Public Use
  Company Number: US-ACTELION-A-NJ2017-149653

PATIENT
  Age: 68 Year
  Sex: Female

DRUGS (1)
  1. UPTRAVI [Suspect]
     Active Substance: SELEXIPAG
     Indication: PULMONARY ARTERIAL HYPERTENSION
     Dosage: 200 MCG, BID
     Route: 048
     Dates: start: 20170203

REACTIONS (4)
  - Nasopharyngitis [Unknown]
  - Asthenia [Unknown]
  - Productive cough [Unknown]
  - Mood altered [Unknown]

NARRATIVE: CASE EVENT DATE: 20170203
